FAERS Safety Report 6249031-X (Version None)
Quarter: 2009Q2

REPORT INFORMATION
  Report Type: 
  Country: None (occurrence: None)
  Receive Date: 20090624
  Receipt Date: 20090624
  Transmission Date: 20091009
  Serious: Yes (Other)
  Sender: FDA-Public Use
  Company Number: None

PATIENT
  Age: 51 Year
  Sex: Female
  Weight: 79.3795 kg

DRUGS (2)
  1. CYMBALTA [Suspect]
     Indication: DEPRESSION
     Dosage: 20 MG ONCE DAILY PO
     Route: 048
     Dates: start: 20080609, end: 20090619
  2. CYMBALTA [Suspect]
     Indication: FIBROMYALGIA
     Dosage: 20 MG ONCE DAILY PO
     Route: 048
     Dates: start: 20080609, end: 20090619

REACTIONS (13)
  - ANGER [None]
  - CRYING [None]
  - DIARRHOEA [None]
  - EPISTAXIS [None]
  - HEADACHE [None]
  - NAUSEA [None]
  - PAIN [None]
  - PARANOIA [None]
  - PHOTOPSIA [None]
  - SLEEP TERROR [None]
  - VERTIGO [None]
  - VISION BLURRED [None]
  - WITHDRAWAL SYNDROME [None]
